FAERS Safety Report 6610762-0 (Version None)
Quarter: 2010Q1

REPORT INFORMATION
  Report Type: 
  Country: None (occurrence: None)
  Receive Date: 20100302
  Receipt Date: 20100219
  Transmission Date: 20100710
  Serious: Yes (Hospitalization)
  Sender: FDA-Public Use
  Company Number: B0630108A

PATIENT
  Sex: Male
  Weight: 2.6 kg

DRUGS (5)
  1. PAXIL [Suspect]
     Dosage: 10MG FOUR TIMES PER DAY
  2. BROTIZOLAM [Suspect]
     Dosage: .25MG PER DAY
  3. FLUNITRAZEPAM [Suspect]
     Dosage: 2MG PER DAY
  4. BROMAZEPAM [Suspect]
     Dosage: 8MG PER DAY
  5. LORMETAZEPAM [Suspect]
     Dosage: 1MG PER DAY

REACTIONS (10)
  - CRYING [None]
  - DRUG EXPOSURE DURING PREGNANCY [None]
  - DRUG WITHDRAWAL SYNDROME NEONATAL [None]
  - FEEDING DISORDER NEONATAL [None]
  - IRRITABILITY [None]
  - MUSCLE TIGHTNESS [None]
  - NYSTAGMUS [None]
  - SWEAT GLAND DISORDER [None]
  - TACHYPNOEA [None]
  - TREMOR [None]
